FAERS Safety Report 8633312 (Version 2)
Quarter: 2012Q4

REPORT INFORMATION
  Report Type: 
  Country: US (occurrence: US)
  Receive Date: 20120625
  Receipt Date: 20120927
  Transmission Date: 20130627
  Serious: Yes (Other)
  Sender: FDA-Public Use
  Company Number: US-BAYER-2012-058859

PATIENT

DRUGS (1)
  1. FINACEA [Suspect]
     Indication: ROSACEA
     Dosage: UNK

REACTIONS (6)
  - Coeliac disease [None]
  - Coeliac disease [None]
  - Eye irritation [None]
  - Ocular hyperaemia [None]
  - Food allergy [None]
  - Food allergy [None]
